FAERS Safety Report 7966524-5 (Version None)
Quarter: 2011Q4

REPORT INFORMATION
  Report Type: 
  Country: None (occurrence: None)
  Receive Date: 20111208
  Receipt Date: 20111129
  Transmission Date: 20120403
  Serious: Yes (Hospitalization)
  Sender: FDA-Public Use
  Company Number: US-ASTRAZENECA-2011SE63955

PATIENT
  Age: 31 Year
  Sex: Female

DRUGS (11)
  1. SEROQUEL XR [Suspect]
     Indication: MAJOR DEPRESSION
     Route: 048
  2. CYMBALTA [Concomitant]
     Route: 048
  3. PRAZOSIN HCL [Concomitant]
     Route: 048
  4. LORAZEPAM [Concomitant]
  5. SEROQUEL XR [Suspect]
     Route: 048
     Dates: start: 20111014
  6. MERATIN [Concomitant]
  7. VITAMIN D [Concomitant]
     Route: 048
  8. PROVERA [Concomitant]
     Route: 048
  9. VITAMIN B-12 [Concomitant]
     Route: 048
  10. METFORMIN HCL [Concomitant]
     Route: 048
  11. NEURONTIN [Concomitant]
     Route: 048

REACTIONS (5)
  - CONFUSIONAL STATE [None]
  - ADVERSE REACTION [None]
  - SUPRAVENTRICULAR TACHYCARDIA [None]
  - DEPRESSION [None]
  - NAUSEA [None]
